FAERS Safety Report 6526868-0 (Version None)
Quarter: 2010Q1

REPORT INFORMATION
  Report Type: 
  Country: None (occurrence: None)
  Receive Date: 20100105
  Receipt Date: 20091223
  Transmission Date: 20100710
  Serious: Yes (Hospitalization, Other)
  Sender: FDA-Public Use
  Company Number: PHEH2009US08006

PATIENT
  Sex: Female

DRUGS (10)
  1. TEKTURNA [Suspect]
     Dosage: UNK
     Route: 048
     Dates: end: 20090722
  2. METFORMIN [Concomitant]
  3. SPIRONOLACTONE [Concomitant]
  4. LASIX [Concomitant]
  5. BYSTOLIC [Concomitant]
  6. CHLORTHALIDONE [Concomitant]
  7. RANITIDINE [Concomitant]
  8. LEXAPRO [Concomitant]
     Dosage: 10 MG, QD
  9. ATORVASTATIN CALCIUM [Concomitant]
     Dosage: 70 MG, BID
  10. GLIPIZIDE [Concomitant]

REACTIONS (4)
  - DIZZINESS [None]
  - HYPERKALAEMIA [None]
  - RENAL FAILURE ACUTE [None]
  - URINARY TRACT INFECTION [None]
